FAERS Safety Report 22051073 (Version 3)
Quarter: 2023Q2

REPORT INFORMATION
  Report Type: Spontaneous
  Country: JP (occurrence: JP)
  Receive Date: 20230301
  Receipt Date: 20230628
  Transmission Date: 20230722
  Serious: Yes (Hospitalization)
  Sender: FDA-Public Use
  Company Number: JP-Eisai Medical Research-EC-2023-134964

PATIENT
  Sex: Male

DRUGS (6)
  1. LENVIMA [Suspect]
     Active Substance: LENVATINIB
     Indication: Renal cell carcinoma
     Route: 048
     Dates: start: 20221121, end: 20221128
  2. LENVIMA [Suspect]
     Active Substance: LENVATINIB
     Dosage: DOSE AND FREQUENCY UNKNOWN
     Route: 048
     Dates: start: 202212, end: 20230105
  3. LENVIMA [Suspect]
     Active Substance: LENVATINIB
     Route: 048
     Dates: start: 20230619
  4. KEYTRUDA [Concomitant]
     Active Substance: PEMBROLIZUMAB
     Indication: Renal cell carcinoma
     Route: 041
     Dates: start: 20221121, end: 20221128
  5. KEYTRUDA [Concomitant]
     Active Substance: PEMBROLIZUMAB
     Dosage: DOSE AND FREQUENCY UNKNOWN
     Route: 041
     Dates: start: 202212, end: 20230105
  6. KEYTRUDA [Concomitant]
     Active Substance: PEMBROLIZUMAB
     Dosage: DOSE AND FREQUENCY UNKNOWN
     Route: 041
     Dates: start: 2023

REACTIONS (2)
  - Pulmonary embolism [Recovered/Resolved]
  - Coronavirus infection [Recovered/Resolved]

NARRATIVE: CASE EVENT DATE: 20230101
